FAERS Safety Report 4273756-9 (Version None)
Quarter: 2004Q1

REPORT INFORMATION
  Report Type: 
  Country: None (occurrence: None)
  Receive Date: 20040115
  Receipt Date: 20040105
  Transmission Date: 20041129
  Serious: Yes (Death, Hospitalization)
  Sender: FDA-Public Use
  Company Number: 200082

PATIENT
  Age: 45 Year
  Sex: Male
  Weight: 98.4 kg

DRUGS (7)
  1. RITUXAN [Suspect]
     Indication: CHRONIC LYMPHOCYTIC LEUKAEMIA
     Dosage: 375 MG/M2, INTRAVENOUS
     Route: 042
     Dates: start: 20030215
  2. SOLU-MEDROL [Suspect]
     Indication: CHRONIC LYMPHOCYTIC LEUKAEMIA
     Dosage: 1 G/M2, INTRAVENOUS
     Route: 042
     Dates: start: 20030211
  3. ALLOPURINOL [Concomitant]
  4. VALTREX [Concomitant]
  5. BACTRIM [Concomitant]
  6. VICODIN (HYDROCODONE BITARTRATE, ACETAMINOPHEN) [Concomitant]
  7. LEVAQUIN [Concomitant]

REACTIONS (4)
  - CARDIAC ARREST [None]
  - FEBRILE NEUTROPENIA [None]
  - HYPOTENSION [None]
  - SEPSIS [None]
